FAERS Safety Report 8756223 (Version 1)
Quarter: 2012Q4

REPORT INFORMATION
  Report Type: 
  Country: CA (occurrence: CA)
  Receive Date: 20120828
  Receipt Date: 20120828
  Transmission Date: 20130627
  Serious: Yes (Death)
  Sender: FDA-Public Use
  Company Number: PHHY2012CA069334

PATIENT
  Age: 73 Year
  Sex: Female

DRUGS (1)
  1. ZOMETA [Suspect]
     Indication: LUNG CANCER METASTATIC
     Dosage: 4 mg, every 4 weeks
     Dates: start: 20120803, end: 20120803

REACTIONS (3)
  - Death [Fatal]
  - Heart rate increased [Unknown]
  - Body temperature decreased [Unknown]
